FAERS Safety Report 13169154 (Version 2)
Quarter: 2017Q1

REPORT INFORMATION
  Report Type: Spontaneous
  Country: AU (occurrence: AU)
  Receive Date: 20170201
  Receipt Date: 20170208
  Transmission Date: 20170428
  Serious: Yes (Life-Threatening)
  Sender: FDA-Public Use
  Company Number: AU-ROCHE-1887396

PATIENT
  Age: 71 Year
  Sex: Female

DRUGS (2)
  1. MABTHERA [Suspect]
     Active Substance: RITUXIMAB
     Indication: PRODUCT USED FOR UNKNOWN INDICATION
     Dosage: FORTNIGHTLY?(INFUSION 500MG/50ML
     Route: 042
     Dates: start: 20160517, end: 20170104
  2. METHOTREXATE. [Concomitant]
     Active Substance: METHOTREXATE
     Dosage: 2.5 MG TABLET
     Route: 065
     Dates: start: 20151027

REACTIONS (1)
  - Metastatic malignant melanoma [Recovering/Resolving]

NARRATIVE: CASE EVENT DATE: 20170104
